FAERS Safety Report 7988554-X (Version None)
Quarter: 2011Q4

REPORT INFORMATION
  Report Type: 
  Country: None (occurrence: None)
  Receive Date: 20111218
  Receipt Date: 20100426
  Transmission Date: 20120403
  Serious: Yes (Hospitalization)
  Sender: FDA-Public Use
  Company Number: PHHY2010US092821

PATIENT
  Sex: Male

DRUGS (1)
  1. EXJADE [Suspect]
     Dates: end: 20091001

REACTIONS (1)
  - CONVULSION [None]
